FAERS Safety Report 8512304-1 (Version None)
Quarter: 2012Q3

REPORT INFORMATION
  Report Type: 
  Country: None (occurrence: None)
  Receive Date: 20120716
  Receipt Date: 20120705
  Transmission Date: 20120928
  Serious: Yes (Death, Hospitalization)
  Sender: FDA-Public Use
  Company Number: US-ACTELION-A-NJ2012-61115

PATIENT

DRUGS (2)
  1. TRACLEER [Suspect]
     Indication: PULMONARY ARTERIAL HYPERTENSION
     Dosage: UNK
     Route: 048
     Dates: end: 20120601
  2. TRACLEER [Suspect]
     Dosage: UNK
     Route: 048
     Dates: start: 20120101

REACTIONS (10)
  - ASTHENIA [None]
  - SUFFOCATION FEELING [None]
  - GAIT DISTURBANCE [None]
  - PULMONARY FIBROSIS [None]
  - SWELLING [None]
  - BACK PAIN [None]
  - DYSPNOEA [None]
  - COUGH [None]
  - DEATH [None]
  - CONDITION AGGRAVATED [None]
